FAERS Safety Report 4517331-7 (Version None)
Quarter: 2004Q4

REPORT INFORMATION
  Report Type: 
  Country: None (occurrence: None)
  Receive Date: 20041007
  Receipt Date: 20040416
  Transmission Date: 20050328
  Serious: Yes (Life-Threatening, Hospitalization, Other)
  Sender: FDA-Public Use
  Company Number: 2004-04-0826

PATIENT
  Age: 46 Year
  Sex: Male
  Weight: 75 kg

DRUGS (4)
  1. TEMODAR [Suspect]
     Indication: METASTATIC MALIGNANT MELANOMA
     Dosage: 150 MG QD ORAL
     Route: 048
     Dates: start: 20040301
  2. THALIDOMIDE [Concomitant]
  3. DEXAMETHASONE [Concomitant]
  4. PANTOPRAZOL [Concomitant]

REACTIONS (2)
  - LYMPHOPENIA [None]
  - PNEUMOCYSTIS CARINII PNEUMONIA [None]
